FAERS Safety Report 8296341-0 (Version None)
Quarter: 2012Q2

REPORT INFORMATION
  Report Type: 
  Country: None (occurrence: None)
  Receive Date: 20120418
  Receipt Date: 20120416
  Transmission Date: 20120825
  Serious: Yes (Death, Other)
  Sender: FDA-Public Use
  Company Number: JP-PFIZER INC-2012094086

PATIENT
  Age: 86 Year
  Sex: Male

DRUGS (16)
  1. ISOSORBIDE DINITRATE [Concomitant]
  2. ZETIA [Concomitant]
     Dosage: 10 MG, DAILY
  3. CRESTOR [Concomitant]
  4. FUROSEMIDE [Concomitant]
     Dosage: 40 MG, DAILY
  5. PLAVIX [Concomitant]
  6. ALLOPURINOL [Concomitant]
  7. CANDESARTAN CILEXETIL [Concomitant]
     Dosage: 12 MG, DAILY
  8. NIKORANMART [Concomitant]
  9. LANTUS [Concomitant]
  10. NORVASC [Suspect]
     Dosage: 15 MG, DAILY
     Route: 048
  11. CARVEDILOL [Concomitant]
     Dosage: 15 MG, DAILY
  12. LANSOPRAZOLE [Concomitant]
  13. PRORNER [Concomitant]
  14. ASPIRIN [Concomitant]
  15. GLUFAST [Concomitant]
  16. URIEF [Concomitant]

REACTIONS (3)
  - HYPOXIA [None]
  - PULMONARY OEDEMA [None]
  - CARDIAC FAILURE CONGESTIVE [None]
